FAERS Safety Report 21921057 (Version 9)
Quarter: 2024Q1

REPORT INFORMATION
  Report Type: Report from Study
  Country: PL (occurrence: PL)
  Receive Date: 20230127
  Receipt Date: 20240308
  Transmission Date: 20240410
  Serious: Yes (Other)
  Sender: FDA-Public Use
  Company Number: PL-ROCHE-3112501

PATIENT
  Age: 58 Year
  Sex: Female
  Weight: 66 kg

DRUGS (14)
  1. CARBOPLATIN [Suspect]
     Active Substance: CARBOPLATIN
     Indication: Small cell lung cancer extensive stage
     Dosage: 700 MG
     Route: 065
     Dates: start: 20211213
  2. ETOPOSIDE [Suspect]
     Active Substance: ETOPOSIDE
     Indication: Small cell lung cancer extensive stage
     Dosage: 495 MG
     Route: 042
     Dates: start: 20211213
  3. ATEZOLIZUMAB [Suspect]
     Active Substance: ATEZOLIZUMAB
     Indication: Small cell lung cancer extensive stage
     Dosage: 1200 MG
     Route: 042
     Dates: start: 20211122
  4. ATEZOLIZUMAB [Suspect]
     Active Substance: ATEZOLIZUMAB
     Dosage: 1200 MG
     Route: 042
     Dates: start: 20211213
  5. ENOXAPARIN [Concomitant]
     Active Substance: ENOXAPARIN
     Indication: Prophylaxis
     Dosage: UNK, 1X/DAY
     Dates: start: 20211213
  6. PREDNISONE [Concomitant]
     Active Substance: PREDNISONE
     Indication: Hypothyroidism
     Dosage: UNK, 1X/DAY
     Dates: start: 20220420, end: 20220515
  7. POTASSIUM CHLORIDE [Concomitant]
     Active Substance: POTASSIUM CHLORIDE
     Dosage: UNK
     Dates: start: 20220615, end: 20220701
  8. MEGESTROLI ACETAS [Concomitant]
     Indication: Decreased appetite
     Dosage: UNK, 1X/DAY
     Dates: start: 20220622, end: 20220701
  9. ETAMSYLAT [Concomitant]
     Dosage: UNK UNK, 3X/DAY
     Dates: start: 20220623, end: 20220628
  10. OXYGEN [Concomitant]
     Active Substance: OXYGEN
     Dosage: UNK
     Dates: start: 20220529, end: 20220617
  11. FLUCONAZOLE [Concomitant]
     Active Substance: FLUCONAZOLE
     Dosage: UNK, 1X/DAY
     Dates: start: 20220603, end: 20220608
  12. INSULIN NOS [Concomitant]
     Active Substance: INSULIN NOS
     Dosage: UNK
     Dates: start: 20220530, end: 20220613
  13. MEROPENEM [Concomitant]
     Active Substance: MEROPENEM
     Dosage: 1 G, 3X/DAY
     Dates: start: 20220619, end: 20220627
  14. INSULIN NOS [Concomitant]
     Active Substance: INSULIN NOS
     Dosage: UNK
     Dates: start: 20220530, end: 20220613

REACTIONS (4)
  - Hepatotoxicity [Recovered/Resolved]
  - Hypothyroidism [Recovering/Resolving]
  - Diarrhoea [Recovered/Resolved]
  - Tongue fungal infection [Recovered/Resolved]

NARRATIVE: CASE EVENT DATE: 20220516
